FAERS Safety Report 12497202 (Version 2)
Quarter: 2017Q1

REPORT INFORMATION
  Report Type: Spontaneous
  Country: DE (occurrence: DE)
  Receive Date: 20160624
  Receipt Date: 20170109
  Transmission Date: 20170428
  Serious: Yes (Other)
  Sender: FDA-Public Use
  Company Number: DE-CIPLA LTD.-2016DE08098

PATIENT

DRUGS (14)
  1. QUETIAPINE. [Suspect]
     Active Substance: QUETIAPINE
     Indication: MENTAL DISORDER
     Dosage: 150 MG/TG
     Route: 065
  2. ESKETAMINE [Concomitant]
     Active Substance: ESKETAMINE
     Indication: ANAESTHESIA
     Dosage: 20 MG/?
     Route: 065
  3. SUXAMETHONIUM [Concomitant]
     Active Substance: SUCCINYLCHOLINE
     Indication: HYPOTONIA
     Dosage: 10 MG/?
     Route: 065
  4. SUCCINYLCHOLINE [Concomitant]
     Active Substance: SUCCINYLCHOLINE
     Indication: HYPOTONIA
     Dosage: 10 MG/?
     Route: 065
  5. VENLAFAXINE [Suspect]
     Active Substance: VENLAFAXINE HYDROCHLORIDE
     Indication: BIPOLAR II DISORDER
     Dosage: 75 MG/TG
     Route: 065
  6. SUCCINYLCHOLINE [Concomitant]
     Active Substance: SUCCINYLCHOLINE
     Dosage: 15 MG/?
     Route: 065
  7. DONEPEZIL. [Suspect]
     Active Substance: DONEPEZIL
     Indication: MENTAL DISORDER
     Dosage: 5 MG/TG
     Route: 065
  8. PANTOPRAZOLE [Concomitant]
     Active Substance: PANTOPRAZOLE SODIUM
     Dosage: 40 MG/TG
     Route: 065
  9. DONEPEZIL. [Suspect]
     Active Substance: DONEPEZIL
     Dosage: 10 MG/TG
     Route: 065
  10. S-KETAMINE [Suspect]
     Active Substance: ESKETAMINE
     Indication: ANAESTHESIA
     Dosage: 1 * 20 MG/?
     Route: 065
  11. CLONIDINE. [Suspect]
     Active Substance: CLONIDINE
     Dosage: 75 UG/TG
     Route: 065
  12. TORASEMIDE [Concomitant]
     Active Substance: TORSEMIDE
     Dosage: 5 MG/TG
     Route: 065
  13. QUETIAPINE. [Suspect]
     Active Substance: QUETIAPINE
     Dosage: 300 MG/TG
     Route: 065
  14. L-THYROXINE [Concomitant]
     Active Substance: LEVOTHYROXINE
     Indication: PRODUCT USED FOR UNKNOWN INDICATION
     Dosage: 25 UG/TG
     Route: 065

REACTIONS (4)
  - Ventricular extrasystoles [Unknown]
  - Postictal state [Unknown]
  - Cardiac arrest [Recovered/Resolved]
  - Rhythm idioventricular [Recovered/Resolved]
